FAERS Safety Report 4402507-X (Version None)
Quarter: 2004Q3

REPORT INFORMATION
  Report Type: 
  Country: None (occurrence: None)
  Receive Date: 20040720
  Receipt Date: 20040712
  Transmission Date: 20050211
  Serious: Yes (Hospitalization)
  Sender: FDA-Public Use
  Company Number: IT-MERCK-0407ITA00015

PATIENT
  Age: 70 Year
  Sex: Female

DRUGS (5)
  1. FOSAMAX [Suspect]
     Indication: OSTEOPOROSIS
     Route: 048
     Dates: start: 20040606, end: 20040627
  2. MAGNESIUM HYDROXIDE AND ALUMINUM HYDROXIDE AND ASPIRIN [Concomitant]
     Route: 065
  3. CALCIUM CARBONATE AND CHOLECALCIFEROL [Suspect]
     Route: 048
     Dates: start: 20040601, end: 20040630
  4. DOMPERIDONE [Concomitant]
     Route: 065
  5. ESOMEPRAZOLE SODIUM [Concomitant]
     Indication: HIATUS HERNIA
     Route: 048
     Dates: start: 20040101

REACTIONS (2)
  - SKIN LESION [None]
  - VASCULITIS [None]
